FAERS Safety Report 9197875 (Version 2)
Quarter: 2013Q2

REPORT INFORMATION
  Report Type: Spontaneous
  Country: US (occurrence: US)
  Receive Date: 20130328
  Receipt Date: 20130415
  Transmission Date: 20140414
  Serious: Yes (Hospitalization)
  Sender: FDA-Public Use
  Company Number: US-GENZYME-POMP-1002904

PATIENT
  Age: 58 Year
  Sex: Male

DRUGS (1)
  1. LUMIZYME [Suspect]
     Indication: GLYCOGEN STORAGE DISEASE TYPE II
     Dosage: 2000 MG, Q2W
     Route: 042
     Dates: start: 20110907

REACTIONS (10)
  - Cardiac disorder [Unknown]
  - Renal disorder [Unknown]
  - Pneumonia [Unknown]
  - Oxygen saturation decreased [Not Recovered/Not Resolved]
  - Anaemia [Unknown]
  - Palpitations [Unknown]
  - Weight increased [Unknown]
  - Epistaxis [Unknown]
  - Blood pressure increased [Recovered/Resolved with Sequelae]
  - Hyperhidrosis [Unknown]
